FAERS Safety Report 20618743 (Version 1)
Quarter: 2022Q1

REPORT INFORMATION
  Report Type: Spontaneous
  Country: CA (occurrence: CA)
  Receive Date: 20220322
  Receipt Date: 20220322
  Transmission Date: 20220423
  Serious: Yes (Hospitalization, Other)
  Sender: FDA-Public Use
  Company Number: CA-AUROBINDO-AUR-APL-2022-008434

PATIENT
  Age: 84 Year
  Sex: Female

DRUGS (1)
  1. ROSUVASTATIN [Suspect]
     Active Substance: ROSUVASTATIN
     Indication: Acute coronary syndrome
     Dosage: 40 MILLIGRAM, ONCE A DAY
     Route: 048

REACTIONS (6)
  - Acute kidney injury [Unknown]
  - Asthenia [Unknown]
  - Blood creatine phosphokinase abnormal [Unknown]
  - Gait disturbance [Unknown]
  - Hypoaesthesia [Unknown]
  - Myoglobin urine present [Unknown]
